FAERS Safety Report 4422977-0 (Version None)
Quarter: 2004Q3

REPORT INFORMATION
  Report Type: 
  Country: None (occurrence: None)
  Receive Date: 20040805
  Receipt Date: 20040721
  Transmission Date: 20050211
  Serious: Yes (Hospitalization)
  Sender: FDA-Public Use
  Company Number: 199954

PATIENT
  Age: 42 Year
  Sex: Female

DRUGS (16)
  1. AVONEX [Suspect]
     Indication: MULTIPLE SCLEROSIS
     Dosage: 30 MCG QW IM
     Route: 030
     Dates: start: 20010101, end: 20030101
  2. AVONEX [Suspect]
     Indication: MULTIPLE SCLEROSIS
     Dosage: 30 MCG QW IM
     Route: 030
     Dates: start: 20040613
  3. IMMUNE GLOBULIN INTRAVENOUS (HUMAN) [Concomitant]
  4. DETROL [Concomitant]
  5. AMANTADINE HCL [Concomitant]
  6. TEGREDOL [Concomitant]
  7. REBIF [Concomitant]
  8. WELLBUTRIN [Concomitant]
  9. CARBAMAZEPINE [Concomitant]
  10. LISINOPRIL [Concomitant]
  11. TOPROX XL [Concomitant]
  12. PLAVIX [Concomitant]
  13. PROTONIX [Concomitant]
  14. PROZAC [Concomitant]
  15. LIPITOR [Concomitant]
  16. ASPIRIN [Concomitant]

REACTIONS (6)
  - ACUTE MYOCARDIAL INFARCTION [None]
  - CARDIAC FAILURE [None]
  - CORONARY ARTERY DISEASE [None]
  - ELECTROCARDIOGRAM ABNORMAL [None]
  - HAEMORRHAGE [None]
  - VENTRICULAR DYSFUNCTION [None]
